FAERS Safety Report 11757090 (Version 3)
Quarter: 2016Q1

REPORT INFORMATION
  Report Type: Spontaneous
  Country: JP (occurrence: JP)
  Receive Date: 20151120
  Receipt Date: 20160127
  Transmission Date: 20160525
  Serious: Yes (Hospitalization, Disabling)
  Sender: FDA-Public Use
  Company Number: JP-ASTRAZENECA-2015SF11891

PATIENT
  Age: 74 Year
  Sex: Female
  Weight: 56 kg

DRUGS (18)
  1. NESINA [Suspect]
     Active Substance: ALOGLIPTIN BENZOATE
     Route: 048
  2. AMITIZA [Concomitant]
     Active Substance: LUBIPROSTONE
     Route: 048
  3. BAYASPIRIN [Suspect]
     Active Substance: ASPIRIN
     Route: 048
  4. PLAVIX [Suspect]
     Active Substance: CLOPIDOGREL BISULFATE
     Route: 048
  5. CLOPIDOGREL SULFATE [Concomitant]
     Active Substance: CLOPIDOGREL BISULFATE
     Route: 048
  6. GLIMEPIRIDE. [Suspect]
     Active Substance: GLIMEPIRIDE
     Route: 048
     Dates: start: 20150616
  7. FUROSEMIDE. [Suspect]
     Active Substance: FUROSEMIDE
     Route: 048
  8. ARTIST [Suspect]
     Active Substance: CARVEDILOL
     Route: 048
  9. NEXIUM [Concomitant]
     Active Substance: ESOMEPRAZOLE MAGNESIUM
     Route: 048
  10. TEARBALANCE [Concomitant]
     Active Substance: HYALURONATE SODIUM
     Route: 047
  11. FORXIGA [Suspect]
     Active Substance: DAPAGLIFLOZIN
     Indication: TYPE 2 DIABETES MELLITUS
     Dosage: 5 MG EVERY DAY, AFTER BREAKFAST
     Route: 048
     Dates: start: 20150908, end: 20151028
  12. GLIMEPIRIDE. [Suspect]
     Active Substance: GLIMEPIRIDE
     Route: 048
     Dates: start: 20150210, end: 20150615
  13. FUROSEMIDE. [Suspect]
     Active Substance: FUROSEMIDE
     Route: 048
  14. LIPIDIL [Suspect]
     Active Substance: FENOFIBRATE
     Route: 048
  15. GLIMEPIRIDE. [Suspect]
     Active Substance: GLIMEPIRIDE
     Route: 048
     Dates: end: 20150209
  16. KARY UNI [Concomitant]
     Active Substance: PIRENOXINE
     Route: 047
  17. BIO-THREE [Concomitant]
     Active Substance: HERBALS
     Route: 048
  18. SPIRONOLACTONE. [Suspect]
     Active Substance: SPIRONOLACTONE
     Route: 048

REACTIONS (3)
  - Hypoglycaemic encephalopathy [Not Recovered/Not Resolved]
  - Dehydration [Not Recovered/Not Resolved]
  - Pyelonephritis acute [Not Recovered/Not Resolved]

NARRATIVE: CASE EVENT DATE: 20151028
